FAERS Safety Report 14477729 (Version 1)
Quarter: 2018Q1

REPORT INFORMATION
  Report Type: Spontaneous
  Country: SE (occurrence: SE)
  Receive Date: 20180201
  Receipt Date: 20180201
  Transmission Date: 20180509
  Serious: No
  Sender: FDA-Public Use
  Company Number: SE-EXELIXIS-CABO-17009815

PATIENT
  Sex: Male

DRUGS (1)
  1. COMETRIQ [Suspect]
     Active Substance: CABOZANTINIB S-MALATE
     Indication: THYROID CANCER
     Dosage: UNK
     Route: 048

REACTIONS (3)
  - Dental caries [Unknown]
  - Periodontitis [Unknown]
  - Dry mouth [Unknown]

NARRATIVE: CASE EVENT DATE: 2014
